FAERS Safety Report 9336609 (Version 1)
Quarter: 2013Q2

REPORT INFORMATION
  Report Type: Spontaneous
  Country: US (occurrence: US)
  Receive Date: 20130607
  Receipt Date: 20130607
  Transmission Date: 20140414
  Serious: No
  Sender: FDA-Public Use
  Company Number: US-PFIZER INC-2013170270

PATIENT
  Age: 80 Year
  Sex: Female
  Weight: 52.61 kg

DRUGS (5)
  1. LYRICA [Suspect]
     Indication: SLEEP DISORDER
     Dosage: UNK, 1X/DAY
     Route: 048
     Dates: start: 2013, end: 2013
  2. LYRICA [Suspect]
     Dosage: 100 MG, 1X/DAY
     Route: 048
     Dates: start: 2013, end: 2013
  3. LYRICA [Suspect]
     Dosage: 75 MG, 1X/DAY
     Route: 048
     Dates: start: 2013
  4. COZAAR [Concomitant]
     Indication: HYPERTENSION
     Dosage: UNK, 1X/DAY
  5. HYDROCODONE [Concomitant]
     Indication: PAIN
     Dosage: UNK, 1X/DAY

REACTIONS (3)
  - Off label use [Unknown]
  - Drug ineffective for unapproved indication [Unknown]
  - Hypersomnia [Unknown]
